FAERS Safety Report 5276905-9 (Version None)
Quarter: 2007Q1

REPORT INFORMATION
  Report Type: 
  Country: None (occurrence: None)
  Receive Date: 20070327
  Receipt Date: 20070322
  Transmission Date: 20070707
  Serious: Yes (Death, Hospitalization, Other)
  Sender: FDA-Public Use
  Company Number: US-BAYER-200710422BWH

PATIENT
  Age: 54 Year
  Sex: Male
  Weight: 69 kg

DRUGS (3)
  1. TRASYLOL [Suspect]
     Indication: CORONARY ARTERY BYPASS
     Dosage: UNIT DOSE: 2000000 KIU
     Route: 042
     Dates: start: 20060824, end: 20060824
  2. TRASYLOL [Suspect]
     Dosage: UNIT DOSE: 500000 KIU
     Route: 042
     Dates: start: 20060824, end: 20060824
  3. COUMADIN [Concomitant]
     Indication: ATRIAL FIBRILLATION

REACTIONS (4)
  - CARDIAC VENTRICULAR DISORDER [None]
  - GRAFT THROMBOSIS [None]
  - HYPOTENSION [None]
  - VENTRICULAR FIBRILLATION [None]
